FAERS Safety Report 9921232 (Version 1)
Quarter: 2014Q1

REPORT INFORMATION
  Report Type: Spontaneous
  Country: US (occurrence: None)
  Receive Date: 20140221
  Receipt Date: 20140221
  Transmission Date: 20141002
  Serious: Yes (Other)
  Sender: FDA-Public Use
  Company Number: None

PATIENT
  Age: 69 Year
  Sex: Female
  Weight: 82.56 kg

DRUGS (1)
  1. COLGATE TARTAR CONTROL WHITENING CRISP MINT [Suspect]

REACTIONS (2)
  - Application site burn [None]
  - Product quality issue [None]
